FAERS Safety Report 21456581 (Version 1)
Quarter: 2022Q4

REPORT INFORMATION
  Report Type: Spontaneous
  Country: US (occurrence: US)
  Receive Date: 20221014
  Receipt Date: 20221014
  Transmission Date: 20230112
  Serious: No
  Sender: FDA-Public Use
  Company Number: US-TEVA-2022-US-2079422

PATIENT
  Sex: Female

DRUGS (1)
  1. ETONOGESTREL/ETHINYL ESTRADIOL [Suspect]
     Active Substance: ETHINYL ESTRADIOL\ETONOGESTREL
     Indication: Abnormal uterine bleeding
     Dosage: 0.120 MG / 0.015 MG
     Route: 065

REACTIONS (3)
  - Product substitution issue [Unknown]
  - Drug ineffective for unapproved indication [Unknown]
  - Abnormal uterine bleeding [Unknown]
